FAERS Safety Report 18606160 (Version 6)
Quarter: 2021Q1

REPORT INFORMATION
  Report Type: Spontaneous
  Country: US (occurrence: US)
  Receive Date: 20201211
  Receipt Date: 20210316
  Transmission Date: 20210419
  Serious: Yes (Hospitalization)
  Sender: FDA-Public Use
  Company Number: US-PFIZER INC-2020488781

PATIENT
  Age: 76 Year
  Sex: Male
  Weight: 108.86 kg

DRUGS (13)
  1. ESCITALOPRAM [Concomitant]
     Active Substance: ESCITALOPRAM OXALATE
     Indication: CARDIAC DISORDER
     Dosage: 10 MG, 1X/DAY
  2. LYRICA [Suspect]
     Active Substance: PREGABALIN
     Dosage: UNK (LYRICA/AM: 50 MG/S: 3X DAY, LYRICA/AM: 50 MG/S: 1X DAY, LYRICA/AM: 50 MG/S: 2X DAY ON CLINICAL)
  3. ASPIRIN COMPOUND [ACETYLSALICYLIC ACID;ASCORBIC ACID] [Concomitant]
     Dosage: 325 MG, 2X/DAY
  4. LASIX [Concomitant]
     Active Substance: FUROSEMIDE
     Indication: CARDIAC FAILURE CONGESTIVE
     Dosage: 40 MG, 1X/DAY
  5. TIZANIDINE. [Concomitant]
     Active Substance: TIZANIDINE
     Indication: MUSCLE RELAXANT THERAPY
     Dosage: 4 MG [4MG IN EVENING]
  6. POTASSIUM [Concomitant]
     Active Substance: POTASSIUM
     Dosage: 20 MG, 1X/DAY
  7. AMIODARONE [Concomitant]
     Active Substance: AMIODARONE
     Indication: CARDIAC DISORDER
     Dosage: 20 MG, 2X/DAY
  8. COLCHICINE. [Concomitant]
     Active Substance: COLCHICINE
     Indication: CARDIAC DISORDER
     Dosage: 0.6 MG, 2X/DAY
  9. PRAVASTATIN. [Concomitant]
     Active Substance: PRAVASTATIN
     Dosage: 80 MG, 1X/DAY
  10. LYRICA [Suspect]
     Active Substance: PREGABALIN
     Dosage: 50 MG, 3X/DAY
     Dates: start: 2020
  11. RAMIPRIL. [Concomitant]
     Active Substance: RAMIPRIL
     Indication: BLOOD PRESSURE ABNORMAL
     Dosage: 5 MG, 1X/DAY
  12. IRON [Concomitant]
     Active Substance: IRON
     Dosage: 350 MG, 1X/DAY
  13. LYRICA [Suspect]
     Active Substance: PREGABALIN
     Indication: NEUROPATHY PERIPHERAL
     Dosage: 50 MG, 3X/DAY (EVERY 8 HOURS)
     Route: 048

REACTIONS (6)
  - Urinary tract infection [Unknown]
  - Therapeutic product effect incomplete [Unknown]
  - Fall [Unknown]
  - Hypotension [Unknown]
  - Chest pain [Unknown]
  - COVID-19 [Recovered/Resolved]

NARRATIVE: CASE EVENT DATE: 202005
